FAERS Safety Report 6131185-7 (Version None)
Quarter: 2009Q1

REPORT INFORMATION
  Report Type: 
  Country: None (occurrence: None)
  Receive Date: 20090323
  Receipt Date: 20090312
  Transmission Date: 20090719
  Serious: Yes (Death)
  Sender: FDA-Public Use
  Company Number: 2009AP001035

PATIENT
  Age: 38 Year
  Sex: Female

DRUGS (8)
  1. PAROXETINE HCL [Suspect]
     Indication: ANXIETY
     Dosage: 10 MG;QD PO
     Route: 048
     Dates: start: 20060101
  2. AMOXICILLIN [Concomitant]
  3. CLAVULANATE POTASSIUM (CLAVULANATE POTASSIUM) [Concomitant]
  4. DIHYDROCODEINE BITARTRATE INJ [Concomitant]
  5. ACETAMINOPHEN [Concomitant]
  6. PREDNISOLONE [Concomitant]
  7. PANTOPRAZOLE SODIUM [Concomitant]
  8. BECLOMETHASONE DIPROPIONATE [Concomitant]

REACTIONS (4)
  - ARRHYTHMIA [None]
  - ARTERIOSPASM CORONARY [None]
  - PANIC ATTACK [None]
  - WITHDRAWAL SYNDROME [None]
